FAERS Safety Report 4821175-6 (Version None)
Quarter: 2005Q4

REPORT INFORMATION
  Report Type: 
  Country: None (occurrence: None)
  Receive Date: 20051103
  Receipt Date: 20051024
  Transmission Date: 20060501
  Serious: Yes (Other)
  Sender: FDA-Public Use
  Company Number: 2005121247

PATIENT
  Age: 44 Year
  Sex: Female
  Weight: 204.1187 kg

DRUGS (4)
  1. ZOLOFT [Suspect]
     Indication: MOOD SWINGS
     Dosage: 200 MG (100 MG, 1 IN 1 D), ORAL
     Route: 048
     Dates: start: 19990101
  2. TRAZODONE HCL [Concomitant]
  3. LASIX [Concomitant]
  4. CLARITIN [Concomitant]

REACTIONS (27)
  - ARTHRALGIA [None]
  - BACK PAIN [None]
  - CONDITION AGGRAVATED [None]
  - DEPRESSION [None]
  - DYSPNOEA PAROXYSMAL NOCTURNAL [None]
  - HOT FLUSH [None]
  - HYPERSOMNIA [None]
  - INCREASED APPETITE [None]
  - JOINT RANGE OF MOTION DECREASED [None]
  - JOINT STIFFNESS [None]
  - MOOD SWINGS [None]
  - MUCOSAL DRYNESS [None]
  - MULTIPLE ALLERGIES [None]
  - MYALGIA [None]
  - NOCTURIA [None]
  - OEDEMA PERIPHERAL [None]
  - ORTHOPNOEA [None]
  - PAIN IN EXTREMITY [None]
  - RASH [None]
  - RESPIRATORY RATE INCREASED [None]
  - SCRATCH [None]
  - SKIN DISORDER [None]
  - STRESS [None]
  - TEMPERATURE INTOLERANCE [None]
  - TREATMENT NONCOMPLIANCE [None]
  - TYMPANIC MEMBRANE DISORDER [None]
  - WEIGHT INCREASED [None]
